FAERS Safety Report 6401319-5 (Version None)
Quarter: 2009Q4

REPORT INFORMATION
  Report Type: 
  Country: None (occurrence: None)
  Receive Date: 20091015
  Receipt Date: 20070402
  Transmission Date: 20100525
  Serious: Yes (Disabling)
  Sender: FDA-Public Use
  Company Number: US-ASTRAZENECA-2006UW08400

PATIENT
  Sex: Male

DRUGS (6)
  1. SEROQUEL [Suspect]
     Dosage: 25-400 MG
     Route: 048
     Dates: start: 20011024
  2. IMITREX [Concomitant]
     Dosage: 23-MAY-2000
  3. PAXIL [Concomitant]
     Dosage: 15-20 MG
     Dates: start: 20000523
  4. METFORMIN HYDROCHLORIDE [Concomitant]
     Dates: start: 20050401
  5. GLIPIZIDE [Concomitant]
     Dates: start: 20050401
  6. NAPROSYN [Concomitant]
     Dates: start: 20000216

REACTIONS (1)
  - ILL-DEFINED DISORDER [None]
